FAERS Safety Report 19847539 (Version 1)
Quarter: 2021Q3

REPORT INFORMATION
  Report Type: Spontaneous
  Country: CN (occurrence: CN)
  Receive Date: 20210917
  Receipt Date: 20210917
  Transmission Date: 20211014
  Serious: Yes (Hospitalization)
  Sender: FDA-Public Use
  Company Number: CN-PFIZER INC-202101183480

PATIENT
  Age: 43 Year
  Sex: Male
  Weight: 70 kg

DRUGS (7)
  1. MANNITOL. [Suspect]
     Active Substance: MANNITOL
     Indication: SPINAL CORD INJURY
     Dosage: 100.0 ML, TWICE A DAY
     Route: 041
     Dates: start: 20210828, end: 20210831
  2. METHYLPREDNISOLONE SODIUM SUCCINATE. [Suspect]
     Active Substance: METHYLPREDNISOLONE SODIUM SUCCINATE
     Indication: SPINAL CORD INJURY
     Dosage: 40.0 MG, ONCE A DAY
     Route: 041
     Dates: start: 20210829, end: 20210831
  3. ASMETON [Suspect]
     Active Substance: AMINOPHYLLINE\CHLORPHENIRAMINE MALEATE\METHOXYPHENAMINE HYDROCHLORIDE\NOSCAPINE
     Indication: COUGH
     Dosage: 93.0 MG, THREE TIMES A DAY
     Route: 048
     Dates: start: 20210831, end: 20210905
  4. KAI FEN [Suspect]
     Active Substance: FLURBIPROFEN AXETIL
     Indication: SPINAL CORD INJURY
     Dosage: 50.0 MG, ONCE A DAY
     Route: 041
     Dates: start: 20210829, end: 20210831
  5. SODIUM CHLORIDE. [Concomitant]
     Active Substance: SODIUM CHLORIDE
     Indication: VEHICLE SOLUTION USE
     Dosage: 100.0 ML, 1X/DAY
     Route: 041
     Dates: start: 20210829, end: 20210831
  6. ALPRAZOLAM. [Suspect]
     Active Substance: ALPRAZOLAM
     Indication: SPINAL CORD INJURY
     Dosage: 0.4 MG, ONCE A DAY
     Route: 048
     Dates: start: 20210828, end: 20210904
  7. NEUROTROPIN [RABBIT VACCINIA EXTRACT] [Concomitant]
     Active Substance: ORYCTOLAGUS CUNICULUS SKIN
     Indication: SPINAL CORD INJURY
     Dosage: 8.0 IU, 2X/DAY
     Route: 048
     Dates: start: 20210828, end: 20210908

REACTIONS (6)
  - Discomfort [Recovering/Resolving]
  - Hepatic steatosis [Recovering/Resolving]
  - Drug-induced liver injury [Recovering/Resolving]
  - Hepatic function abnormal [Recovering/Resolving]
  - Abdominal distension [Recovering/Resolving]
  - Decreased appetite [Recovering/Resolving]

NARRATIVE: CASE EVENT DATE: 20210831
